FAERS Safety Report 11378072 (Version 1)
Quarter: 2015Q3

REPORT INFORMATION
  Report Type: Spontaneous
  Country: US (occurrence: US)
  Receive Date: 20150811
  Receipt Date: 20150811
  Transmission Date: 20151125
  Serious: No
  Sender: FDA-Public Use
  Company Number: US-ELI_LILLY_AND_COMPANY-US201112004611

PATIENT
  Age: 52 Year
  Sex: Male
  Weight: 95.24 kg

DRUGS (2)
  1. CIALIS [Suspect]
     Active Substance: TADALAFIL
     Dosage: 20 MG, UNKNOWN
     Dates: start: 20111201
  2. TESTIM [Concomitant]
     Active Substance: TESTOSTERONE
     Dosage: 5 G, QD
     Route: 061
     Dates: start: 20111201

REACTIONS (1)
  - Swelling face [Not Recovered/Not Resolved]

NARRATIVE: CASE EVENT DATE: 20111202
